FAERS Safety Report 5964505-4 (Version None)
Quarter: 2008Q4

REPORT INFORMATION
  Report Type: 
  Country: None (occurrence: None)
  Receive Date: 20081122
  Receipt Date: 20081122
  Transmission Date: 20090506
  Serious: Yes (Hospitalization)
  Sender: FDA-Public Use
  Company Number: None

PATIENT
  Age: 46 Year
  Sex: Female
  Weight: 54.8852 kg

DRUGS (5)
  1. CYCLOGYL [Suspect]
     Indication: CORNEAL ABRASION
     Dosage: OPHTH DROPS
     Route: 047
  2. BENADRYL [Suspect]
     Dosage: ORAL
     Route: 048
  3. SERTRALINE [Concomitant]
  4. IBUPROFEN TABLETS [Concomitant]
  5. NEUTRPHOS [Concomitant]

REACTIONS (2)
  - DYSPHEMIA [None]
  - SPEECH DISORDER [None]
